FAERS Safety Report 25960333 (Version 1)
Quarter: 2025Q4

REPORT INFORMATION
  Report Type: Report from Study
  Country: CA (occurrence: CA)
  Receive Date: 20251026
  Receipt Date: 20251026
  Transmission Date: 20260117
  Serious: Yes (Hospitalization)
  Sender: ABBVIE
  Company Number: CA-ABBVIE-5977061

PATIENT
  Age: 92 Year
  Sex: Male

DRUGS (3)
  1. LUPRON [Suspect]
     Active Substance: LEUPROLIDE ACETATE
     Indication: Prostate cancer
     Dosage: FORM STRENGTH: 22.5 MG
     Route: 030
  2. LUPRON [Suspect]
     Active Substance: LEUPROLIDE ACETATE
     Dosage: DOSE STRENGTH:22.5 MG
     Route: 030
     Dates: start: 20190102
  3. LUPRON [Suspect]
     Active Substance: LEUPROLIDE ACETATE
     Dosage: FORM STRENGTH: 22.5 MG
     Route: 030
     Dates: start: 20241019

REACTIONS (8)
  - Loose body in joint [Unknown]
  - Oedema [Unknown]
  - Peripheral swelling [Not Recovered/Not Resolved]
  - Wound [Not Recovered/Not Resolved]
  - Cellulitis [Unknown]
  - Fall [Unknown]
  - Asthenia [Unknown]
  - Chondrocalcinosis [Unknown]

NARRATIVE: CASE EVENT DATE: 20241001
